FAERS Safety Report 9366415 (Version 1)
Quarter: 2013Q2

REPORT INFORMATION
  Report Type: Spontaneous
  Country: FR (occurrence: FR)
  Receive Date: 20130625
  Receipt Date: 20130625
  Transmission Date: 20140414
  Serious: Yes (Hospitalization, Other)
  Sender: FDA-Public Use
  Company Number: FR-TEVA-414438ISR

PATIENT
  Sex: Female

DRUGS (4)
  1. EFFENTORA 200 MG [Suspect]
     Indication: BACK PAIN
     Dosage: 1600 MICROGRAM DAILY;
     Route: 002
  2. LYRICA [Concomitant]
  3. ALPRAZOLAM [Concomitant]
  4. MYSOLINE [Concomitant]

REACTIONS (8)
  - Drug dependence [Unknown]
  - Depression [Unknown]
  - Intentional overdose [Unknown]
  - Off label use [Unknown]
  - Psychopathic personality [Unknown]
  - Ageusia [Unknown]
  - Constipation [Unknown]
  - Weight increased [Unknown]
